FAERS Safety Report 11744796 (Version 2)
Quarter: 2016Q2

REPORT INFORMATION
  Report Type: Spontaneous
  Country: US (occurrence: US)
  Receive Date: 20151116
  Receipt Date: 20160519
  Transmission Date: 20160815
  Serious: No
  Sender: FDA-Public Use
  Company Number: US-MDT-ADR-2015-02166

PATIENT
  Age: 50 Year
  Sex: Male

DRUGS (2)
  1. BACLOFEN. [Suspect]
     Active Substance: BACLOFEN
     Dosage: 20.88 MCG/DAY
     Route: 037
  2. DILAUDID [Suspect]
     Active Substance: HYDROMORPHONE HYDROCHLORIDE
     Dosage: 0.8350 MG/DAY
     Route: 037

REACTIONS (4)
  - Medical device discomfort [Recovered/Resolved]
  - Medical device site injury [Recovered/Resolved]
  - Tenderness [Recovered/Resolved]
  - Fall [Recovered/Resolved]
